FAERS Safety Report 23300700 (Version 2)
Quarter: 2023Q4

REPORT INFORMATION
  Report Type: Spontaneous
  Country: TR (occurrence: TR)
  Receive Date: 20231215
  Receipt Date: 20231228
  Transmission Date: 20240110
  Serious: Yes (Other)
  Sender: FDA-Public Use
  Company Number: TR-002147023-NVSC2023TR261563

PATIENT
  Age: 32 Year
  Sex: Female

DRUGS (1)
  1. TRILEPTAL [Suspect]
     Active Substance: OXCARBAZEPINE
     Indication: Epilepsy
     Dosage: UNK, FOR 20 YEARS, 2*1
     Route: 065

REACTIONS (5)
  - Syncope [Unknown]
  - Seizure [Unknown]
  - Muscle contractions involuntary [Unknown]
  - Product supply issue [Unknown]
  - Wrong technique in product usage process [Unknown]
